FAERS Safety Report 4891999-8 (Version None)
Quarter: 2006Q1

REPORT INFORMATION
  Report Type: 
  Country: None (occurrence: None)
  Receive Date: 20060126
  Receipt Date: 20051215
  Transmission Date: 20060701
  Serious: Yes (Death)
  Sender: FDA-Public Use
  Company Number: JP-BRISTOL-MYERS SQUIBB COMPANY-13218409

PATIENT
  Age: 65 Year
  Sex: Female

DRUGS (10)
  1. TAXOL [Suspect]
     Indication: GASTRIC CANCER
     Route: 042
     Dates: start: 20051128, end: 20051128
  2. TAXOL [Suspect]
     Route: 042
     Dates: start: 20051006, end: 20051006
  3. TAKEPRON [Concomitant]
     Route: 048
     Dates: start: 20030401, end: 20051205
  4. HYPEN [Concomitant]
     Route: 048
     Dates: start: 20051001
  5. POSTERISAN FORTE [Concomitant]
     Route: 054
     Dates: start: 20051001, end: 20051205
  6. NERIPROCT [Concomitant]
     Route: 054
     Dates: start: 20051001, end: 20051205
  7. CYTOTEC [Concomitant]
     Route: 048
     Dates: start: 20051001, end: 20051205
  8. LASIX [Concomitant]
     Route: 048
     Dates: start: 20051101, end: 20051205
  9. ALDACTONE [Concomitant]
     Route: 048
     Dates: start: 20051201, end: 20051205
  10. URSO [Concomitant]
     Route: 048
     Dates: start: 20050901, end: 20051205

REACTIONS (3)
  - DISSEMINATED INTRAVASCULAR COAGULATION [None]
  - SEPTIC SHOCK [None]
  - WHITE BLOOD CELL COUNT DECREASED [None]
